FAERS Safety Report 23326709 (Version 1)
Quarter: 2023Q4

REPORT INFORMATION
  Report Type: Spontaneous
  Country: US (occurrence: US)
  Receive Date: 20231221
  Receipt Date: 20231221
  Transmission Date: 20240109
  Serious: No
  Sender: FDA-Public Use
  Company Number: US-PFIZER INC-202300442854

PATIENT
  Age: 70 Year
  Sex: Female
  Weight: 76.66 kg

DRUGS (2)
  1. PAXLOVID [Suspect]
     Active Substance: NIRMATRELVIR\RITONAVIR
     Indication: COVID-19 treatment
     Dosage: 1 DF
  2. GABAPENTIN [Concomitant]
     Active Substance: GABAPENTIN
     Indication: Back pain
     Dosage: 300 MG, 3X/DAY
     Route: 048

REACTIONS (5)
  - Headache [Unknown]
  - Chills [Unknown]
  - Oropharyngeal pain [Unknown]
  - Oral pain [Unknown]
  - Lip pain [Unknown]
